FAERS Safety Report 9958900 (Version 2)
Quarter: 2014Q1

REPORT INFORMATION
  Report Type: Report from Study
  Country: US (occurrence: US)
  Receive Date: 20140305
  Receipt Date: 20140305
  Transmission Date: 20141002
  Serious: No
  Sender: FDA-Public Use
  Company Number: US-ABBVIE-13P-163-1081674-00

PATIENT
  Age: 21 Year
  Sex: Male

DRUGS (5)
  1. HUMIRA [Suspect]
     Indication: CROHN^S DISEASE
     Dates: start: 20130305
  2. UNKNOWN MEDICATION [Concomitant]
     Indication: JOINT SWELLING
  3. UNKNOWN MEDICATION [Concomitant]
     Indication: ARTHRITIS
  4. VICODIN [Concomitant]
     Indication: PAIN
     Dosage: AS NEEDED- I HARDLY EVER TAKE
  5. SUPPLEMENTS [Concomitant]
     Indication: SUPPLEMENTATION THERAPY

REACTIONS (6)
  - Sluggishness [Recovering/Resolving]
  - Nausea [Unknown]
  - Abdominal pain [Unknown]
  - Contusion [Not Recovered/Not Resolved]
  - Crohn^s disease [Not Recovered/Not Resolved]
  - Pain [Not Recovered/Not Resolved]
